FAERS Safety Report 25329971 (Version 1)
Quarter: 2025Q2

REPORT INFORMATION
  Report Type: Spontaneous
  Country: JP (occurrence: JP)
  Receive Date: 20250519
  Receipt Date: 20250519
  Transmission Date: 20250717
  Serious: Yes (Death, Other)
  Sender: GILEAD
  Company Number: JP-GILEAD-2025-0709404

PATIENT
  Sex: Female

DRUGS (5)
  1. TRODELVY [Suspect]
     Active Substance: SACITUZUMAB GOVITECAN-HZIY
     Indication: Triple negative breast cancer
     Route: 065
     Dates: start: 20250116, end: 20250307
  2. KYTRIL [Concomitant]
     Active Substance: GRANISETRON HYDROCHLORIDE
  3. DECADRON (DEXAMETHASONE SODIUM PHOSPHATE) [Concomitant]
     Active Substance: DEXAMETHASONE SODIUM PHOSPHATE
  4. GASTER [Concomitant]
     Active Substance: FAMOTIDINE
  5. EMEND [Concomitant]
     Active Substance: APREPITANT

REACTIONS (2)
  - Triple negative breast cancer [Unknown]
  - Pneumonia [Fatal]

NARRATIVE: CASE EVENT DATE: 20250101
